FAERS Safety Report 17519557 (Version 2)
Quarter: 2020Q1

REPORT INFORMATION
  Report Type: Spontaneous
  Country: UY (occurrence: UY)
  Receive Date: 20200310
  Receipt Date: 20200319
  Transmission Date: 20200409
  Serious: Yes (Death)
  Sender: FDA-Public Use
  Company Number: UY-ROCHE-2564917

PATIENT
  Age: 27 Year
  Sex: Female

DRUGS (1)
  1. XOLAIR [Suspect]
     Active Substance: OMALIZUMAB
     Indication: ASTHMA
     Dosage: 1200 MG, QMO (600 MG EVERY 15 DAYS)
     Route: 058
     Dates: start: 201801

REACTIONS (2)
  - Asthmatic crisis [Fatal]
  - Respiratory arrest [Fatal]
